FAERS Safety Report 16681838 (Version 1)
Quarter: 2019Q3

REPORT INFORMATION
  Report Type: Spontaneous
  Country: CA (occurrence: CA)
  Receive Date: 20190808
  Receipt Date: 20190808
  Transmission Date: 20191004
  Serious: Yes (Disabling, Other)
  Sender: FDA-Public Use
  Company Number: CA-SA-2019SA210495

PATIENT
  Age: 60 Year
  Sex: Female
  Weight: 97 kg

DRUGS (18)
  1. CEFACLOR. [Suspect]
     Active Substance: CEFACLOR
     Indication: PRODUCT USED FOR UNKNOWN INDICATION
  2. ARAVA [Suspect]
     Active Substance: LEFLUNOMIDE
     Indication: RHEUMATOID ARTHRITIS
     Dosage: UNK UNK, UNK
  3. METRONIDAZOLE. [Suspect]
     Active Substance: METRONIDAZOLE
     Dosage: UNK
  4. SULFASALAZINE. [Suspect]
     Active Substance: SULFASALAZINE
     Indication: RHEUMATOID ARTHRITIS
     Dosage: 500 MG
  5. NORFLOXACIN [Suspect]
     Active Substance: NORFLOXACIN
     Indication: PRODUCT USED FOR UNKNOWN INDICATION
     Dosage: 400 MG
  6. CELECOXIB. [Suspect]
     Active Substance: CELECOXIB
     Indication: PRODUCT USED FOR UNKNOWN INDICATION
     Dosage: 200 MG, QD
     Route: 048
  7. LEVOFLOXACIN. [Suspect]
     Active Substance: LEVOFLOXACIN
     Indication: PRODUCT USED FOR UNKNOWN INDICATION
  8. DEMEROL [Suspect]
     Active Substance: MEPERIDINE HYDROCHLORIDE
     Indication: RHEUMATOID ARTHRITIS
     Dosage: UNK UNK, UNK
  9. LYRICA [Suspect]
     Active Substance: PREGABALIN
     Indication: PRODUCT USED FOR UNKNOWN INDICATION
     Dosage: UNK UNK, UNK
  10. MEPERIDINE [PETHIDINE] [Suspect]
     Active Substance: MEPERIDINE
     Indication: RHEUMATOID ARTHRITIS
     Dosage: UNK UNK, UNK
  11. PLAQUENIL [Suspect]
     Active Substance: HYDROXYCHLOROQUINE SULFATE
     Indication: RHEUMATOID ARTHRITIS
     Dosage: 400 MG, QD
     Route: 048
  12. ERYTHROMYCIN. [Suspect]
     Active Substance: ERYTHROMYCIN
     Indication: PRODUCT USED FOR UNKNOWN INDICATION
  13. BISOPROLOL FUMARATE. [Suspect]
     Active Substance: BISOPROLOL FUMARATE
     Indication: PRODUCT USED FOR UNKNOWN INDICATION
  14. ARTHROTEC [Suspect]
     Active Substance: DICLOFENAC SODIUM\MISOPROSTOL
     Indication: RHEUMATOID ARTHRITIS
  15. HUMIRA [Suspect]
     Active Substance: ADALIMUMAB
     Indication: RHEUMATOID ARTHRITIS
     Dosage: 400 MG, UNK
     Route: 058
  16. METHOTREXATE. [Suspect]
     Active Substance: METHOTREXATE
     Indication: RHEUMATOID ARTHRITIS
     Dosage: 20 MG, QW
     Route: 048
  17. PREDNISONE. [Suspect]
     Active Substance: PREDNISONE
     Indication: RHEUMATOID ARTHRITIS
     Dosage: UNK UNK, UNK
  18. LEFLUNOMIDE. [Suspect]
     Active Substance: LEFLUNOMIDE
     Indication: RHEUMATOID ARTHRITIS

REACTIONS (10)
  - Vomiting [Unknown]
  - Bloody discharge [Unknown]
  - Lyme disease [Unknown]
  - Nausea [Unknown]
  - Therapeutic product effect incomplete [Unknown]
  - Drug intolerance [Unknown]
  - International normalised ratio fluctuation [Unknown]
  - Fatigue [Unknown]
  - Infection [Unknown]
  - Drug hypersensitivity [Unknown]
